FAERS Safety Report 8888182 (Version 2)
Quarter: 2013Q1

REPORT INFORMATION
  Report Type: Spontaneous
  Country: US (occurrence: US)
  Receive Date: 20121106
  Receipt Date: 20130213
  Transmission Date: 20140127
  Serious: No
  Sender: FDA-Public Use
  Company Number: US-JNJFOC-20121015456

PATIENT
  Sex: Female
  Weight: 71.67 kg

DRUGS (1)
  1. DURAGESIC [Suspect]
     Indication: BACK PAIN
     Route: 062

REACTIONS (3)
  - Poor quality drug administered [Not Recovered/Not Resolved]
  - Drug ineffective [Not Recovered/Not Resolved]
  - Product quality issue [Unknown]
